FAERS Safety Report 8062953-2 (Version None)
Quarter: 2012Q1

REPORT INFORMATION
  Report Type: 
  Country: None (occurrence: None)
  Receive Date: 20120123
  Receipt Date: 20120123
  Transmission Date: 20120608
  Serious: Yes (Hospitalization)
  Sender: FDA-Public Use
  Company Number: None

PATIENT
  Age: 27 Year
  Sex: Female
  Weight: 52.163 kg

DRUGS (1)
  1. NJOY ELECTRONIC CIGARETTE [Suspect]
     Dates: start: 20120119, end: 20120121

REACTIONS (2)
  - CHEST PAIN [None]
  - HEART RATE INCREASED [None]
